FAERS Safety Report 24675049 (Version 4)
Quarter: 2025Q3

REPORT INFORMATION
  Report Type: Spontaneous
  Country: JP (occurrence: JP)
  Receive Date: 20241128
  Receipt Date: 20250809
  Transmission Date: 20251020
  Serious: Yes (Hospitalization, Other)
  Sender: ALEXION PHARMACEUTICALS
  Company Number: JP-AstraZeneca-CH-00750866A

PATIENT
  Sex: Male

DRUGS (1)
  1. ULTOMIRIS [Suspect]
     Active Substance: RAVULIZUMAB-CWVZ
     Indication: Neuromyelitis optica spectrum disorder
     Route: 065

REACTIONS (9)
  - Pyrexia [Not Recovered/Not Resolved]
  - Pneumonia [Unknown]
  - Oral dysaesthesia [Unknown]
  - Rash [Unknown]
  - Zinc deficiency [Unknown]
  - Oropharyngeal pain [Unknown]
  - Inflammation [Not Recovered/Not Resolved]
  - Eosinophilia [Unknown]
  - Infection [Unknown]

NARRATIVE: CASE EVENT DATE: 20241001
